FAERS Safety Report 25099711 (Version 1)
Quarter: 2025Q1

REPORT INFORMATION
  Report Type: Spontaneous
  Country: US (occurrence: US)
  Receive Date: 20250320
  Receipt Date: 20250320
  Transmission Date: 20250409
  Serious: No
  Sender: AMGEN
  Company Number: US-AMGEN-USASP2025053566

PATIENT
  Sex: Male

DRUGS (1)
  1. OTEZLA [Suspect]
     Active Substance: APREMILAST
     Indication: Psoriasis
     Dosage: 20 MILLIGRAM, BID
     Route: 048

REACTIONS (4)
  - Nausea [Not Recovered/Not Resolved]
  - Diarrhoea [Unknown]
  - Off label use [Unknown]
  - Product dose omission issue [Unknown]
